FAERS Safety Report 7385343-4 (Version None)
Quarter: 2011Q1

REPORT INFORMATION
  Report Type: 
  Country: None (occurrence: None)
  Receive Date: 20110330
  Receipt Date: 20100924
  Transmission Date: 20110831
  Serious: No
  Sender: FDA-Public Use
  Company Number: US-MYLANLABS-2010S1017802

PATIENT
  Age: 24 Year
  Sex: Female

DRUGS (6)
  1. EMSAM [Suspect]
     Dosage: Q24H
     Route: 062
     Dates: start: 20100801, end: 20100901
  2. LITHIUM [Concomitant]
  3. TOPAMAX [Concomitant]
  4. EMSAM [Suspect]
     Indication: MAJOR DEPRESSION
     Dosage: Q24H
     Route: 062
     Dates: start: 20100601, end: 20100801
  5. GABITRIL [Concomitant]
  6. EMSAM [Suspect]
     Dosage: Q24H
     Route: 062
     Dates: start: 20100901

REACTIONS (3)
  - BLADDER PAIN [None]
  - SENSATION OF PRESSURE [None]
  - POLLAKIURIA [None]
